FAERS Safety Report 11109492 (Version 1)
Quarter: 2015Q2

REPORT INFORMATION
  Report Type: Spontaneous
  Country: US (occurrence: US)
  Receive Date: 20150513
  Receipt Date: 20150513
  Transmission Date: 20150821
  Serious: No
  Sender: FDA-Public Use
  Company Number: US-ALVOGEN-2015AL001191

PATIENT
  Age: 52 Year
  Sex: Female
  Weight: 81.65 kg

DRUGS (3)
  1. GABAPENTIN. [Concomitant]
     Active Substance: GABAPENTIN
     Indication: NEURALGIA
     Dates: start: 201405
  2. VISTARIL /00058403/ [Concomitant]
     Indication: PRODUCT USED FOR UNKNOWN INDICATION
     Dates: start: 201405
  3. ACETAMINOPHEN W/OXYCODONE [Suspect]
     Active Substance: ACETAMINOPHEN\OXYCODONE HYDROCHLORIDE
     Indication: BACK PAIN
     Route: 048
     Dates: start: 201501, end: 201501

REACTIONS (6)
  - Palpitations [Recovered/Resolved]
  - Product substitution issue [Recovered/Resolved]
  - Hyperhidrosis [Recovered/Resolved]
  - Drug ineffective [Recovered/Resolved]
  - Dizziness [Recovered/Resolved]
  - Nausea [Recovered/Resolved]

NARRATIVE: CASE EVENT DATE: 201501
